FAERS Safety Report 6532155-7 (Version None)
Quarter: 2009Q4

REPORT INFORMATION
  Report Type: 
  Country: None (occurrence: None)
  Receive Date: 20091224
  Receipt Date: 20090128
  Transmission Date: 20100525
  Serious: Yes (Hospitalization)
  Sender: FDA-Public Use
  Company Number: RENA-1000368

PATIENT
  Age: 51 Year
  Sex: Male

DRUGS (1)
  1. RENAGEL [Suspect]
     Indication: HYPERPHOSPHATAEMIA
     Dosage: 12.8 G, QD, ORAL
     Route: 048

REACTIONS (1)
  - INTESTINAL OBSTRUCTION [None]
